FAERS Safety Report 7042845-8 (Version None)
Quarter: 2010Q4

REPORT INFORMATION
  Report Type: 
  Country: None (occurrence: None)
  Receive Date: 20101013
  Receipt Date: 20100727
  Transmission Date: 20110411
  Serious: No
  Sender: FDA-Public Use
  Company Number: US-ASTRAZENECA-2010SE35396

PATIENT
  Age: 67 Year
  Sex: Female
  Weight: 70.3 kg

DRUGS (3)
  1. SYMBICORT [Suspect]
     Dosage: 160/4.6 UG TWO PUFFS BID
     Route: 055
     Dates: start: 20090101
  2. SYMBICORT [Suspect]
     Dosage: 160/4.6 UG TWO PUFFS BID
     Route: 055
     Dates: start: 20100715
  3. PROAIR HFA [Concomitant]

REACTIONS (4)
  - DRUG DOSE OMISSION [None]
  - DYSPNOEA [None]
  - NASOPHARYNGITIS [None]
  - SINUSITIS [None]
